FAERS Safety Report 8066995-2 (Version None)
Quarter: 2012Q1

REPORT INFORMATION
  Report Type: 
  Country: None (occurrence: None)
  Receive Date: 20120124
  Receipt Date: 20120119
  Transmission Date: 20120608
  Serious: Yes (Hospitalization, Disabling, Other)
  Sender: FDA-Public Use
  Company Number: PR-MERCK-1112USA02420

PATIENT
  Age: 73 Year
  Sex: Female

DRUGS (2)
  1. FOSAMAX [Suspect]
     Indication: OSTEOPOROSIS
     Route: 048
     Dates: start: 20000101, end: 20110501
  2. FOSAMAX [Suspect]
     Indication: OSTEOPENIA
     Route: 048
     Dates: start: 20000101, end: 20110501

REACTIONS (24)
  - LUMBAR VERTEBRAL FRACTURE [None]
  - MUSCULAR WEAKNESS [None]
  - ARTHRALGIA [None]
  - INJURY [None]
  - FACET JOINT SYNDROME [None]
  - POLYNEUROPATHY [None]
  - DENTAL CARIES [None]
  - ADVERSE EVENT [None]
  - ANXIETY [None]
  - BACK PAIN [None]
  - RHEUMATOID ARTHRITIS [None]
  - ORAL DISORDER [None]
  - FEMUR FRACTURE [None]
  - BALANCE DISORDER [None]
  - SPONDYLOLISTHESIS [None]
  - EXOSTOSIS [None]
  - BONE DISORDER [None]
  - MUSCULOSKELETAL DISORDER [None]
  - MUSCLE SPASMS [None]
  - FALL [None]
  - PELVIC FRACTURE [None]
  - FOOT FRACTURE [None]
  - SPINAL OSTEOARTHRITIS [None]
  - HYPERTENSION [None]
